FAERS Safety Report 7904098-5 (Version None)
Quarter: 2011Q4

REPORT INFORMATION
  Report Type: 
  Country: None (occurrence: None)
  Receive Date: 20111109
  Receipt Date: 20111031
  Transmission Date: 20120403
  Serious: Yes (Other)
  Sender: FDA-Public Use
  Company Number: DK-NOVEN-11DK003506

PATIENT
  Sex: Female
  Weight: 73.6 kg

DRUGS (18)
  1. IBUPROFEN [Concomitant]
     Dosage: UNK
     Dates: start: 20061201
  2. NORTRIPTYLINE HCL [Suspect]
     Dosage: UNK
     Route: 065
     Dates: start: 20090223, end: 20110701
  3. IBUPROFEN [Suspect]
     Indication: HEADACHE
     Dosage: UNK
     Dates: start: 20041201, end: 20110301
  4. PAMOL [Concomitant]
     Dosage: UNK
     Dates: start: 20061201
  5. PAROXETINE HCL [Concomitant]
     Dosage: UNK
     Dates: end: 20100101
  6. MIANSERIN [Suspect]
     Indication: DEPRESSION
     Dosage: UNK
     Dates: start: 20080925, end: 20081201
  7. TRAMADOL HCL [Suspect]
     Indication: HEADACHE
     Dosage: UNK
     Dates: start: 20060816, end: 20061201
  8. TRUXAL                             /00012101/ [Suspect]
     Indication: PSYCHOTIC DISORDER
     Dosage: UNK
     Dates: start: 20061201, end: 20110801
  9. NORTRIPTYLINE HCL [Suspect]
     Indication: DEPRESSION
     Dosage: UNK
     Dates: start: 20090223, end: 20110701
  10. MIGEA [Suspect]
     Indication: MIGRAINE
     Dosage: UNK
     Dates: start: 20100618
  11. ACETAMINOPHEN [Concomitant]
     Dosage: UNK
     Dates: start: 20060816
  12. MAGNESIUM HYDROXID [Concomitant]
  13. ZOPICLONE [Suspect]
     Indication: INSOMNIA
     Dosage: 7.5 MG, QD
     Dates: start: 20060405, end: 20110401
  14. MIANSERIN [Suspect]
     Dosage: UNK, UNKNOWN
     Route: 065
     Dates: start: 20080925, end: 20081201
  15. TRAMADOL HCL [Suspect]
     Indication: PAIN
  16. EFFEXOR [Suspect]
     Indication: PRODUCT USED FOR UNKNOWN INDICATION
     Dosage: UNK
     Dates: start: 20060928, end: 20081201
  17. MIRTAZAPINE [Suspect]
     Indication: ANXIETY
     Dosage: UNK
     Dates: start: 20060302, end: 20110401
  18. PAROXETINE HCL [Suspect]
     Indication: DEPRESSION
     Dosage: UNK
     Dates: start: 20090223

REACTIONS (8)
  - ABDOMINAL DISTENSION [None]
  - GASTROOESOPHAGEAL REFLUX DISEASE [None]
  - HAEMORRHOIDS [None]
  - OEDEMA [None]
  - RECTAL HAEMORRHAGE [None]
  - DYSPEPSIA [None]
  - FAECES HARD [None]
  - CONSTIPATION [None]
